FAERS Safety Report 21480059 (Version 2)
Quarter: 2022Q4

REPORT INFORMATION
  Report Type: Spontaneous
  Country: US (occurrence: US)
  Receive Date: 20221019
  Receipt Date: 20221118
  Transmission Date: 20230112
  Serious: Yes (Hospitalization)
  Sender: FDA-Public Use
  Company Number: US-JNJFOC-20221026830

PATIENT
  Sex: Male

DRUGS (9)
  1. ZYTIGA [Interacting]
     Active Substance: ABIRATERONE ACETATE
     Indication: Product used for unknown indication
     Dosage: 250MG TABLETS ONCE A DAY
     Route: 048
     Dates: start: 202204
  2. ATORVASTATIN [Suspect]
     Active Substance: ATORVASTATIN
     Indication: Blood cholesterol increased
     Route: 065
     Dates: start: 201701, end: 20220608
  3. ASPIRIN [Concomitant]
     Active Substance: ASPIRIN
     Route: 065
     Dates: start: 20220301
  4. TAMSULOSIN [Concomitant]
     Active Substance: TAMSULOSIN
     Indication: Prostatic disorder
     Route: 065
     Dates: start: 201701
  5. COVID-19 VACCINE [Concomitant]
     Dosage: 1ST DOSE
     Route: 065
  6. COVID-19 VACCINE [Concomitant]
     Dosage: 2ND DOSE
     Route: 065
  7. COVID-19 VACCINE [Concomitant]
     Route: 065
  8. COVID-19 VACCINE [Concomitant]
     Route: 065
  9. COVID-19 VACCINE [Concomitant]
     Route: 065

REACTIONS (3)
  - Drug interaction [Unknown]
  - Liver disorder [Unknown]
  - Hot flush [Recovered/Resolved]
